FAERS Safety Report 5063007-X (Version None)
Quarter: 2006Q3

REPORT INFORMATION
  Report Type: 
  Country: None (occurrence: None)
  Receive Date: 20060724
  Receipt Date: 20060724
  Transmission Date: 20061208
  Serious: No
  Sender: FDA-Public Use
  Company Number: None

PATIENT
  Age: 54 Year
  Sex: Female
  Weight: 60.3284 kg

DRUGS (1)
  1. VERSED [Suspect]
     Indication: BREAST LUMP REMOVAL
     Dates: start: 20060621, end: 20060621

REACTIONS (9)
  - ANAESTHETIC COMPLICATION [None]
  - DEHYDRATION [None]
  - DRUG ADMINISTRATION ERROR [None]
  - DRY MOUTH [None]
  - DRY THROAT [None]
  - DYSPHAGIA [None]
  - DYSPHONIA [None]
  - LOSS OF CONSCIOUSNESS [None]
  - PHARYNGOLARYNGEAL PAIN [None]
